FAERS Safety Report 21520881 (Version 1)
Quarter: 2022Q4

REPORT INFORMATION
  Report Type: Spontaneous
  Country: CZ (occurrence: None)
  Receive Date: 20221028
  Receipt Date: 20221028
  Transmission Date: 20230113
  Serious: Yes (Other)
  Sender: FDA-Public Use
  Company Number: CZ-Merck Healthcare KGaA-9359669

PATIENT
  Age: 39 Year
  Sex: Female

DRUGS (20)
  1. EUTHYROX [Suspect]
     Active Substance: LEVOTHYROXINE SODIUM
     Indication: Hypothyroidism
     Dates: start: 201602
  2. EUTHYROX [Suspect]
     Active Substance: LEVOTHYROXINE SODIUM
     Dates: start: 201611
  3. EUTHYROX [Suspect]
     Active Substance: LEVOTHYROXINE SODIUM
     Dates: start: 201908
  4. EUTHYROX [Suspect]
     Active Substance: LEVOTHYROXINE SODIUM
     Dates: start: 202106
  5. EUTHYROX [Suspect]
     Active Substance: LEVOTHYROXINE SODIUM
     Dates: start: 202106, end: 202201
  6. EUTHYROX [Suspect]
     Active Substance: LEVOTHYROXINE SODIUM
     Dosage: 250 MICROGRAMS 1-0-0 MONDAY TO FRIDAY, ON THE WEEKEND LEVOTHYROXINE (LT4) 200 MICROGRAMS 1-0 0
     Dates: start: 202201
  7. EUTHYROX [Suspect]
     Active Substance: LEVOTHYROXINE SODIUM
     Dosage: LEVOTHYROXINE (LT4) REDUCED 200 MICROGRAMS 1-0-0 MON TO FRI, WEEKEND 250 MICROGRAMS
     Dates: start: 202204
  8. EUTHYROX [Suspect]
     Active Substance: LEVOTHYROXINE SODIUM
     Dosage: DOSE REDUCED
     Dates: start: 202204, end: 202205
  9. EUTHYROX [Suspect]
     Active Substance: LEVOTHYROXINE SODIUM
     Dates: start: 202205
  10. EUTHYROX [Suspect]
     Active Substance: LEVOTHYROXINE SODIUM
     Dates: start: 202205
  11. EUTHYROX [Suspect]
     Active Substance: LEVOTHYROXINE SODIUM
     Dosage: LEVOTHYROXINE (LT4) 225 MICROGRAMS 1-0-0, ON THE WEEKEND 200
     Dates: start: 202208
  12. GILOTRIF [Concomitant]
     Active Substance: AFATINIB
     Indication: Non-small cell lung cancer
     Dates: end: 202006
  13. FIASP [Concomitant]
     Active Substance: INSULIN ASPART
     Indication: Diabetes mellitus
  14. TRESIBA [Concomitant]
     Active Substance: INSULIN DEGLUDEC
     Indication: Diabetes mellitus
  15. MYWY [Concomitant]
     Indication: Non-small cell lung cancer
     Dates: start: 202105
  16. BACLOFEN [Concomitant]
     Active Substance: BACLOFEN
     Indication: Product used for unknown indication
     Dates: start: 202105
  17. TARCEVA [Concomitant]
     Active Substance: ERLOTINIB HYDROCHLORIDE
     Indication: Non-small cell lung cancer
     Dates: start: 202106
  18. TARCEVA [Concomitant]
     Active Substance: ERLOTINIB HYDROCHLORIDE
     Dates: start: 202110, end: 202202
  19. TAGRISSO [Concomitant]
     Active Substance: OSIMERTINIB
     Indication: Non-small cell lung cancer
     Dates: start: 202202
  20. TECENTRIQ [Concomitant]
     Active Substance: ATEZOLIZUMAB
     Indication: Non-small cell lung cancer
     Dates: start: 202103, end: 202105

REACTIONS (19)
  - Lung adenocarcinoma [Recovering/Resolving]
  - Malignant neoplasm progression [Recovering/Resolving]
  - Seizure [Unknown]
  - Paraneoplastic syndrome [Unknown]
  - Hypertonia [Unknown]
  - Muscle spasticity [Recovered/Resolved]
  - Depressed level of consciousness [Unknown]
  - Xerophthalmia [Unknown]
  - Dry mouth [Unknown]
  - Toothache [Unknown]
  - Hypothyroidism [Unknown]
  - Fatigue [Unknown]
  - Dyspnoea [Unknown]
  - Thyroxine free decreased [Unknown]
  - Blood thyroid stimulating hormone increased [Unknown]
  - Palpitations [Unknown]
  - Diarrhoea [Unknown]
  - Muscle spasms [Recovered/Resolved]
  - Intentional product use issue [Unknown]

NARRATIVE: CASE EVENT DATE: 20170101
